FAERS Safety Report 25140005 (Version 4)
Quarter: 2025Q3

REPORT INFORMATION
  Report Type: Spontaneous
  Country: US (occurrence: US)
  Receive Date: 20250331
  Receipt Date: 20250923
  Transmission Date: 20251021
  Serious: Yes (Other)
  Sender: BRISTOL-MYERS SQUIBB COMPANY
  Company Number: US-BRISTOL-MYERS SQUIBB COMPANY-2025-047469

PATIENT
  Age: 84 Year
  Sex: Female

DRUGS (4)
  1. REVLIMID [Suspect]
     Active Substance: LENALIDOMIDE
     Indication: Plasma cell myeloma
  2. REVLIMID [Suspect]
     Active Substance: LENALIDOMIDE
     Indication: Breast cancer female
  3. REVLIMID [Suspect]
     Active Substance: LENALIDOMIDE
     Dosage: QD
  4. ASPIRIN [Suspect]
     Active Substance: ASPIRIN
     Indication: Product used for unknown indication

REACTIONS (6)
  - Post procedural haemorrhage [Recovered/Resolved]
  - Skin disorder [Unknown]
  - Product dose omission issue [Unknown]
  - Product dose omission in error [Unknown]
  - Diarrhoea [Unknown]
  - Fatigue [Unknown]
